FAERS Safety Report 8061546-0 (Version None)
Quarter: 2012Q1

REPORT INFORMATION
  Report Type: 
  Country: None (occurrence: None)
  Receive Date: 20120120
  Receipt Date: 20120111
  Transmission Date: 20120608
  Serious: Yes (Other)
  Sender: FDA-Public Use
  Company Number: PHHY2012JP002990

PATIENT
  Age: 84 Year
  Sex: Male

DRUGS (4)
  1. INDAPAMIDE [Suspect]
     Indication: HYPERTENSION
     Dosage: 1 MG, QD
     Dates: start: 20070101
  2. FAMOTIDINE [Concomitant]
     Indication: GASTRITIS
     Dosage: 20 MG, QD
  3. BENIDIPINE HYDROCHLORIDE [Concomitant]
     Indication: HYPERTENSION
     Dosage: 4 MG, QD
  4. ROSUVASTATIN CALCIUM [Concomitant]
     Indication: HYPERCHOLESTEROLAEMIA
     Dosage: 2.5 MG, QD

REACTIONS (14)
  - VENTRICULAR FLUTTER [None]
  - RENAL FAILURE [None]
  - DEHYDRATION [None]
  - DECREASED APPETITE [None]
  - BLOOD SODIUM DECREASED [None]
  - PLEURAL EFFUSION [None]
  - ARRHYTHMIA [None]
  - CARDIAC FAILURE [None]
  - CARDIOPULMONARY FAILURE [None]
  - HYPOKALAEMIA [None]
  - RHABDOMYOLYSIS [None]
  - NASOPHARYNGITIS [None]
  - RESPIRATORY ARREST [None]
  - METABOLIC ALKALOSIS [None]
